FAERS Safety Report 20810962 (Version 2)
Quarter: 2022Q2

REPORT INFORMATION
  Report Type: Spontaneous
  Country: BR (occurrence: BR)
  Receive Date: 20220510
  Receipt Date: 20220519
  Transmission Date: 20220721
  Serious: Yes (Other)
  Sender: FDA-Public Use
  Company Number: BR-BAYER-2022P002009

PATIENT
  Age: 35 Year
  Sex: Female

DRUGS (1)
  1. KYLEENA [Suspect]
     Active Substance: LEVONORGESTREL
     Dosage: 17.5?G/DAY
     Route: 015
     Dates: start: 20201229, end: 20220502

REACTIONS (8)
  - Ectopic pregnancy with contraceptive device [Unknown]
  - Ruptured ectopic pregnancy [Unknown]
  - Intra-abdominal haemorrhage [Unknown]
  - Intermenstrual bleeding [Unknown]
  - Uterine pain [Unknown]
  - Device dislocation [Recovered/Resolved]
  - Drug ineffective [Unknown]
  - Flank pain [Unknown]

NARRATIVE: CASE EVENT DATE: 20220224
